FAERS Safety Report 7428784-9 (Version None)
Quarter: 2011Q2

REPORT INFORMATION
  Report Type: 
  Country: None (occurrence: None)
  Receive Date: 20110421
  Receipt Date: 20110415
  Transmission Date: 20111010
  Serious: Yes (Hospitalization)
  Sender: FDA-Public Use
  Company Number: US-BRISTOL-MYERS SQUIBB COMPANY-15654429

PATIENT
  Age: 33 Year
  Sex: Male

DRUGS (4)
  1. VICODIN [Concomitant]
     Indication: PAIN
     Dosage: 1 DF=1-2 TABS
  2. MULTI-VITAMINS [Concomitant]
     Dosage: 1 DF= 1 TAB
     Route: 048
  3. IPILIMUMAB [Suspect]
     Indication: MALIGNANT MELANOMA
     Dosage: NO OF COURSES = 2
     Route: 042
     Dates: start: 20110228, end: 20110321
  4. PANTOPRAZOLE [Concomitant]
     Dosage: 1DF:1 TAB PANTOPRAZOLE 40MG ENTERIC COATED TAB 1TAB 2PER DAY
     Route: 048

REACTIONS (4)
  - NAUSEA [None]
  - HAEMATEMESIS [None]
  - VOMITING [None]
  - DEHYDRATION [None]
